FAERS Safety Report 6846342-1 (Version None)
Quarter: 2010Q3

REPORT INFORMATION
  Report Type: 
  Country: None (occurrence: None)
  Receive Date: 20100715
  Receipt Date: 20070913
  Transmission Date: 20110219
  Serious: No
  Sender: FDA-Public Use
  Company Number: US-PFIZER INC-2007077015

PATIENT
  Sex: Female
  Weight: 55.3 kg

DRUGS (8)
  1. CHANTIX [Suspect]
     Indication: SMOKING CESSATION THERAPY
     Dates: start: 20070911
  2. VITAMINS [Concomitant]
  3. ANTIBIOTICS [Concomitant]
     Dates: start: 20070910
  4. FLONASE [Concomitant]
  5. ALLEGRA [Concomitant]
     Indication: HYPERSENSITIVITY
  6. ALL OTHER THERAPEUTIC PRODUCTS [Concomitant]
  7. LIPITOR [Concomitant]
  8. BELLADONNA AND DERIVATIVES [Concomitant]
     Indication: INFREQUENT BOWEL MOVEMENTS

REACTIONS (1)
  - NAUSEA [None]
